FAERS Safety Report 9886466 (Version 2)
Quarter: 2014Q3

REPORT INFORMATION
  Report Type: Spontaneous
  Country: US (occurrence: US)
  Receive Date: 20140210
  Receipt Date: 20140805
  Transmission Date: 20150326
  Serious: Yes (Hospitalization, Other)
  Sender: FDA-Public Use
  Company Number: US-009507513-1402USA004312

PATIENT
  Sex: Female
  Weight: 111.84 kg

DRUGS (1)
  1. NUVARING [Suspect]
     Active Substance: ETHINYL ESTRADIOL\ETONOGESTREL
     Indication: CONTRACEPTION
     Route: 067

REACTIONS (4)
  - Gastric bypass [Unknown]
  - Cervical dysplasia [Unknown]
  - Pulmonary embolism [Unknown]
  - Muscle disorder [Unknown]

NARRATIVE: CASE EVENT DATE: 20071210
